FAERS Safety Report 15411816 (Version 1)
Quarter: 2018Q3

REPORT INFORMATION
  Report Type: Spontaneous
  Country: US (occurrence: US)
  Receive Date: 20180921
  Receipt Date: 20180921
  Transmission Date: 20181010
  Serious: No
  Sender: FDA-Public Use
  Company Number: US-RECKITT BENCKISER HEALTHCARE INT LIMITED-RB-87483-2018

PATIENT
  Age: 82 Year
  Sex: Male

DRUGS (2)
  1. MUCINEX [Suspect]
     Active Substance: GUAIFENESIN
     Dosage: UNK, 2 TABLETS FORAPTIENT^S DOSAGE
     Route: 065
     Dates: start: 20180429
  2. MUCINEX [Suspect]
     Active Substance: GUAIFENESIN
     Indication: SECRETION DISCHARGE
     Dosage: 600 MG, BID
     Route: 065

REACTIONS (1)
  - Feeling abnormal [Recovered/Resolved]
